FAERS Safety Report 10048959 (Version 1)
Quarter: 2014Q1

REPORT INFORMATION
  Report Type: Spontaneous
  Country: CH (occurrence: CH)
  Receive Date: 20140331
  Receipt Date: 20140331
  Transmission Date: 20141002
  Serious: Yes (Hospitalization, Other)
  Sender: FDA-Public Use
  Company Number: CH-ACTAVIS-2013-25074

PATIENT
  Age: 42 Year
  Sex: Female

DRUGS (5)
  1. PACLITAXEL [Suspect]
     Indication: BREAST CANCER FEMALE
     Dosage: Q 2 WK
     Route: 042
     Dates: start: 20130729, end: 20130814
  2. NEUPOGEN [Suspect]
     Indication: AGRANULOCYTOSIS
     Dosage: 30000000 DF, 2/WEEK
     Route: 058
     Dates: start: 20130803, end: 20130804
  3. DOXORUBICIN [Concomitant]
     Indication: PRODUCT USED FOR UNKNOWN INDICATION
     Dosage: UNK, UNKNOWN
     Route: 065
  4. CYCLOPHOSPHAMIDE [Concomitant]
     Indication: PRODUCT USED FOR UNKNOWN INDICATION
     Dosage: UNK, UNKNOWN
     Route: 065
  5. GINGER                             /01646602/ [Concomitant]
     Indication: NAUSEA
     Dosage: UNK, UNKNOWN
     Route: 065

REACTIONS (7)
  - Type I hypersensitivity [Recovered/Resolved]
  - Urticaria [Recovered/Resolved]
  - Blood pressure decreased [Unknown]
  - Dyspnoea [Recovered/Resolved]
  - Rash erythematous [Unknown]
  - Back pain [Unknown]
  - Psoriasis [Unknown]
